FAERS Safety Report 8765654 (Version 3)
Quarter: 2013Q1

REPORT INFORMATION
  Report Type: Report from Study
  Country: US (occurrence: US)
  Receive Date: 20120904
  Receipt Date: 20130322
  Transmission Date: 20140127
  Serious: Yes (Hospitalization, Other)
  Sender: FDA-Public Use
  Company Number: PHEH2012US003944

PATIENT
  Age: 18 Year
  Sex: Male
  Weight: 72.56 kg

DRUGS (6)
  1. AFINITOR [Suspect]
     Indication: ASTROCYTOMA, LOW GRADE
     Dosage: 5 MG, DAILY
     Route: 048
     Dates: start: 20120209
  2. AFINITOR [Suspect]
     Dosage: 10 MG, DAILY
     Route: 048
     Dates: start: 20120214, end: 20120315
  3. AFINITOR [Suspect]
     Dosage: 5 MG, EVERY OTHER DAY
     Route: 048
  4. AFINITOR [Suspect]
     Dosage: 2.5 MG, QOD
     Dates: start: 201207, end: 20120811
  5. VIMPAT [Concomitant]
     Dosage: 200 MG, BID
  6. TRILEPTAL [Concomitant]
     Dosage: 600 MG, BID

REACTIONS (16)
  - Nervous system disorder [Not Recovered/Not Resolved]
  - Convulsion [Unknown]
  - Central nervous system infection [Unknown]
  - Respiratory tract inflammation [Unknown]
  - Malaise [Recovering/Resolving]
  - Drooling [Unknown]
  - Eating disorder [Unknown]
  - Cerebrospinal fluid retention [Unknown]
  - Incorrect dose administered [Recovered/Resolved]
  - Nasopharyngitis [Unknown]
  - Stomatitis [Unknown]
  - Fatigue [Unknown]
  - Acne [Not Recovered/Not Resolved]
  - Oral pain [Unknown]
  - Oral herpes [Recovering/Resolving]
  - Agitation [Recovering/Resolving]
